FAERS Safety Report 23953521 (Version 4)
Quarter: 2024Q3

REPORT INFORMATION
  Report Type: Spontaneous
  Country: CN (occurrence: CN)
  Receive Date: 20240608
  Receipt Date: 20240710
  Transmission Date: 20241017
  Serious: Yes (Other)
  Sender: AUROBINDO
  Company Number: CN-MLMSERVICE-20240521-PI068124-00296-1

PATIENT
  Age: 41 Year
  Sex: Male

DRUGS (1)
  1. SILDENAFIL [Suspect]
     Active Substance: SILDENAFIL
     Indication: Product used for unknown indication
     Dosage: 100 MILLIGRAM (SEVERAL TIMES, DOSE OF SILDENAFIL WAS 100 MG EACH TIME)
     Route: 065

REACTIONS (3)
  - Choroidal effusion [Recovered/Resolved]
  - Angle closure glaucoma [Recovered/Resolved]
  - Intraocular pressure increased [Recovering/Resolving]
